FAERS Safety Report 15584651 (Version 3)
Quarter: 2022Q4

REPORT INFORMATION
  Report Type: Report from Study
  Country: US (occurrence: US)
  Receive Date: 20181102
  Receipt Date: 20221221
  Transmission Date: 20230113
  Serious: Yes (Other)
  Sender: FDA-Public Use
  Company Number: US-ASTELLAS-2018US046528

PATIENT
  Age: 56 Year
  Sex: Male

DRUGS (1)
  1. ENZALUTAMIDE [Suspect]
     Active Substance: ENZALUTAMIDE
     Indication: Prostate cancer
     Dosage: 160 MG (4DF), ONCE DAILY
     Route: 048
     Dates: start: 20181008

REACTIONS (5)
  - Dizziness [Unknown]
  - Balance disorder [Unknown]
  - Coordination abnormal [Unknown]
  - Fatigue [Unknown]
  - Amnesia [Unknown]

NARRATIVE: CASE EVENT DATE: 20181010
